FAERS Safety Report 8999466 (Version 4)
Quarter: 2013Q3

REPORT INFORMATION
  Report Type: Spontaneous
  Country: US (occurrence: US)
  Receive Date: 20130103
  Receipt Date: 20130919
  Transmission Date: 20140515
  Serious: Yes (Death, Hospitalization)
  Sender: FDA-Public Use
  Company Number: US-GLAXOSMITHKLINE-A1006784A

PATIENT
  Age: 82 Year
  Sex: Female

DRUGS (1)
  1. PROMACTA [Suspect]
     Indication: PRODUCT USED FOR UNKNOWN INDICATION
     Dosage: 50MG UNKNOWN
     Route: 065
     Dates: start: 20120927

REACTIONS (3)
  - Hospitalisation [Unknown]
  - Death [Fatal]
  - Platelet count decreased [Unknown]
